FAERS Safety Report 12788800 (Version 1)
Quarter: 2016Q3

REPORT INFORMATION
  Report Type: Report from Study
  Country: DE (occurrence: DE)
  Receive Date: 20160928
  Receipt Date: 20160928
  Transmission Date: 20161109
  Serious: Yes (Other)
  Sender: FDA-Public Use
  Company Number: DE-SUN PHARMACEUTICAL INDUSTRIES LTD-2016R1-124572

PATIENT

DRUGS (7)
  1. DOXORUBICIN [Suspect]
     Active Substance: DOXORUBICIN
     Indication: GANGLIONEUROBLASTOMA
     Dosage: 2 CYCLES OF N6
     Route: 065
  2. VINCRISTINE [Suspect]
     Active Substance: VINCRISTINE
     Indication: GANGLIONEUROBLASTOMA
     Dosage: 2 CYCLES OF N6
     Route: 065
  3. VINDESINE [Suspect]
     Active Substance: VINDESINE
     Indication: GANGLIONEUROBLASTOMA
     Dosage: 2 CYCLES OF N5
     Route: 065
  4. IFOSFAMIDE. [Suspect]
     Active Substance: IFOSFAMIDE
     Indication: GANGLIONEUROBLASTOMA
     Dosage: 2 CYCLES OF N6
     Route: 065
  5. DACARBACIN [Suspect]
     Active Substance: DACARBAZINE
     Indication: GANGLIONEUROBLASTOMA
     Dosage: 2 CYCLES OF N6
     Route: 065
  6. CISPLATIN. [Suspect]
     Active Substance: CISPLATIN
     Indication: GANGLIONEUROBLASTOMA
     Dosage: 2 CYCLES OF N5
     Route: 065
  7. ETOPOSIDE. [Suspect]
     Active Substance: ETOPOSIDE
     Indication: GANGLIONEUROBLASTOMA
     Dosage: 2 CYCLES OF N5
     Route: 065

REACTIONS (1)
  - Drug ineffective [Unknown]
